FAERS Safety Report 9349831 (Version 1)
Quarter: 2013Q2

REPORT INFORMATION
  Report Type: Spontaneous
  Country: US (occurrence: US)
  Receive Date: 20130614
  Receipt Date: 20130614
  Transmission Date: 20140414
  Serious: Yes (Other)
  Sender: FDA-Public Use
  Company Number: US-ASTRAZENECA-2013SE41736

PATIENT
  Age: 78 Year
  Sex: Male

DRUGS (2)
  1. PLENDIL [Suspect]
     Indication: BLOOD PRESSURE ABNORMAL
     Route: 048
  2. PLENDIL [Suspect]
     Indication: BLOOD PRESSURE ABNORMAL
     Dosage: RANBAXY
     Route: 048

REACTIONS (1)
  - Eczema [Recovering/Resolving]
